FAERS Safety Report 9931590 (Version 1)
Quarter: 2014Q1

REPORT INFORMATION
  Report Type: Spontaneous
  Country: IT (occurrence: None)
  Receive Date: 20140225
  Receipt Date: 20140225
  Transmission Date: 20141002
  Serious: Yes (Death)
  Sender: FDA-Public Use
  Company Number: SYM-2014-17715

PATIENT
  Sex: 0

DRUGS (5)
  1. FLUOROURACIL [Suspect]
     Indication: GASTRIC CANCER
     Route: 042
  2. DOCETAXEL [Suspect]
     Indication: GASTRIC CANCER
     Route: 042
  3. CISPLATIN [Suspect]
     Indication: GASTRIC CANCER
     Route: 042
  4. FOLINIC ACID [Suspect]
     Indication: GASTRIC CANCER
     Route: 042
  5. PEGFILGRASTIM [Suspect]
     Indication: GASTRIC CANCER
     Route: 058

REACTIONS (1)
  - Septic shock [None]
